FAERS Safety Report 12348720 (Version 1)
Quarter: 2016Q2

REPORT INFORMATION
  Report Type: Not Available
  Country: PT (occurrence: PT)
  Receive Date: 20160509
  Receipt Date: 20160509
  Transmission Date: 20160815
  Serious: Yes (Disabling)
  Sender: FDA-Public Use
  Company Number: PT-AKORN-30236

PATIENT
  Sex: Male

DRUGS (1)
  1. COSOPT [Suspect]
     Active Substance: DORZOLAMIDE HYDROCHLORIDE\TIMOLOL MALEATE

REACTIONS (6)
  - Headache [None]
  - Eye haemorrhage [None]
  - Eye inflammation [None]
  - Lacrimation increased [None]
  - Ocular hyperaemia [None]
  - Exophthalmos [None]

NARRATIVE: CASE EVENT DATE: 20160428
